FAERS Safety Report 5168792-4 (Version None)
Quarter: 2006Q4

REPORT INFORMATION
  Report Type: 
  Country: None (occurrence: None)
  Receive Date: 20061211
  Receipt Date: 20061206
  Transmission Date: 20070319
  Serious: Yes (Other)
  Sender: FDA-Public Use
  Company Number: US-JNJFOC-20061201871

PATIENT

DRUGS (1)
  1. REOPRO [Suspect]
     Indication: PLATELET AGGREGATION INHIBITION

REACTIONS (1)
  - HEPATIC HAEMORRHAGE [None]
